FAERS Safety Report 18392578 (Version 1)
Quarter: 2020Q4

REPORT INFORMATION
  Report Type: Other
  Country: US (occurrence: US)
  Receive Date: 20201016
  Receipt Date: 20201016
  Transmission Date: 20210114
  Serious: Yes (Other)
  Sender: FDA-Public Use
  Company Number: US-ROCHE-2692973

PATIENT
  Age: 43 Year
  Sex: Female
  Weight: 118.04 kg

DRUGS (4)
  1. GABAPENTIN. [Concomitant]
     Active Substance: GABAPENTIN
     Indication: MYALGIA
     Dosage: 2 PILLS IN THE A.M. AND 3 PILLS IN THE P.M;
     Dates: start: 2013
  2. OCREVUS [Suspect]
     Active Substance: OCRELIZUMAB
     Indication: MULTIPLE SCLEROSIS
     Dosage: ON 28/SEP/2018, 03/OCT/2018, 22/APR/2019, 21/OCT/2019, OCRELIZUMAB OF AN UNKNOWN DOSAGE FORM.
     Route: 042
     Dates: start: 201710
  3. TIZANIDINE. [Concomitant]
     Active Substance: TIZANIDINE
     Indication: MYALGIA
     Dosage: TAKES 4 PILLS IN THE P.M
  4. DEPAKOTE ER [Concomitant]
     Active Substance: DIVALPROEX SODIUM
     Indication: MIGRAINE
     Dates: start: 2018, end: 202006

REACTIONS (3)
  - Large intestine infection [Not Recovered/Not Resolved]
  - Dyspepsia [Not Recovered/Not Resolved]
  - Diarrhoea [Not Recovered/Not Resolved]

NARRATIVE: CASE EVENT DATE: 201912
